FAERS Safety Report 11050564 (Version 1)
Quarter: 2015Q2

REPORT INFORMATION
  Report Type: Spontaneous
  Country: US (occurrence: None)
  Receive Date: 20150420
  Receipt Date: 20150420
  Transmission Date: 20150821
  Serious: Yes (Other)
  Sender: FDA-Public Use
  Company Number: None

PATIENT
  Age: 34 Year
  Sex: Female
  Weight: 81.65 kg

DRUGS (1)
  1. XARELTO [Suspect]
     Active Substance: RIVAROXABAN
     Indication: POST PROCEDURAL PULMONARY EMBOLISM
     Route: 048
     Dates: start: 20140113, end: 20150417

REACTIONS (4)
  - Eye swelling [None]
  - Dyspnoea [None]
  - Lip swelling [None]
  - Peripheral swelling [None]

NARRATIVE: CASE EVENT DATE: 20150417
